FAERS Safety Report 7086130-7 (Version None)
Quarter: 2010Q4

REPORT INFORMATION
  Report Type: 
  Country: None (occurrence: None)
  Receive Date: 20101105
  Receipt Date: 20101028
  Transmission Date: 20110411
  Serious: Yes (Hospitalization)
  Sender: FDA-Public Use
  Company Number: B0682151A

PATIENT
  Age: 59 Year
  Sex: Female

DRUGS (7)
  1. ONDANSETRON [Suspect]
     Indication: NAUSEA
     Dosage: 16MG PER DAY
     Route: 048
     Dates: start: 20101001, end: 20101013
  2. VELCADE [Suspect]
     Indication: MULTIPLE MYELOMA
     Route: 042
     Dates: start: 20100729
  3. DURAGESIC-100 [Concomitant]
     Indication: PAIN
     Route: 062
  4. FENTANYL CITRATE [Concomitant]
     Indication: BREAKTHROUGH PAIN
     Dosage: 200MCG PER DAY
     Route: 060
     Dates: start: 20100701
  5. METOCLOPRAMIDE [Concomitant]
     Dosage: 30MG PER DAY
     Route: 048
     Dates: start: 20101001
  6. AMITRIPTYLINE HCL [Concomitant]
     Dosage: 25MG PER DAY
     Route: 048
     Dates: start: 20101001
  7. GLICLAZIDE [Concomitant]
     Dosage: 40MG PER DAY
     Route: 048
     Dates: start: 20101001

REACTIONS (2)
  - CONSTIPATION [None]
  - DIARRHOEA [None]
